FAERS Safety Report 16400719 (Version 2)
Quarter: 2019Q3

REPORT INFORMATION
  Report Type: Report from Study
  Country: US (occurrence: US)
  Receive Date: 20190606
  Receipt Date: 20190731
  Transmission Date: 20191004
  Serious: Yes (Hospitalization)
  Sender: FDA-Public Use
  Company Number: US-ACTELION-A-NJ2019-190445

PATIENT
  Sex: Female
  Weight: 89.34 kg

DRUGS (5)
  1. ELIQUIS [Concomitant]
     Active Substance: APIXABAN
  2. HYDROXYCHLOROQUINE [Concomitant]
     Active Substance: HYDROXYCHLOROQUINE
     Dosage: 200 MCG, BID
     Route: 048
  3. TADALAFIL. [Concomitant]
     Active Substance: TADALAFIL
  4. OPSUMIT [Suspect]
     Active Substance: MACITENTAN
     Indication: PULMONARY HYPERTENSION
     Dosage: 10 MG, QD
     Route: 048
  5. PILOCARPINE. [Concomitant]
     Active Substance: PILOCARPINE
     Dosage: 5 MG, BID

REACTIONS (14)
  - Flatulence [Unknown]
  - Weight increased [Unknown]
  - Dry eye [Unknown]
  - Oedema peripheral [Unknown]
  - Blood potassium decreased [Unknown]
  - Frequent bowel movements [Unknown]
  - Swelling [Unknown]
  - Abdominal pain [Unknown]
  - Flushing [Unknown]
  - Dry mouth [Unknown]
  - Hospitalisation [Unknown]
  - Hypotension [Unknown]
  - Myalgia [Unknown]
  - Diarrhoea [Unknown]
